FAERS Safety Report 23278831 (Version 1)
Quarter: 2023Q4

REPORT INFORMATION
  Report Type: Spontaneous
  Country: US (occurrence: US)
  Receive Date: 20231208
  Receipt Date: 20231208
  Transmission Date: 20240109
  Serious: No
  Sender: FDA-Public Use
  Company Number: US-NOVOPROD-985359

PATIENT
  Age: 69 Year
  Sex: Male

DRUGS (2)
  1. NOVOLIN N [Suspect]
     Active Substance: INSULIN HUMAN
     Indication: Product used for unknown indication
     Dosage: 15 UNITS
     Route: 058
     Dates: start: 20221027
  2. LANTUS [Suspect]
     Active Substance: INSULIN GLARGINE
     Indication: Product used for unknown indication
     Dosage: BID

REACTIONS (3)
  - Fatigue [Unknown]
  - Pollakiuria [Unknown]
  - Wrong technique in product usage process [Unknown]
